FAERS Safety Report 12599058 (Version 5)
Quarter: 2016Q4

REPORT INFORMATION
  Report Type: Report from Study
  Country: None (occurrence: BE)
  Receive Date: 20160727
  Receipt Date: 20161205
  Transmission Date: 20170207
  Serious: Yes (Hospitalization)
  Sender: FDA-Public Use
  Company Number: BE-ABBVIE-16P-013-1652658-00

PATIENT
  Sex: Male

DRUGS (6)
  1. DUODOPA [Suspect]
     Active Substance: CARBIDOPA\LEVODOPA
     Dosage: AM DOSE=3ML; CD=2.8ML/H DURING 16HRS; ED=1.6ML; ND=2.6ML/H DURING 8HRS
     Route: 050
     Dates: start: 20161114
  2. PROLOPA [Concomitant]
     Active Substance: BENSERAZIDE\LEVODOPA
     Dosage: FORM STRENGTH: 200MG/50MG UNIT DOSE : 1 TABLET, 4/DAY AS RESCUE MEDICATION
  3. DUODOPA [Suspect]
     Active Substance: CARBIDOPA\LEVODOPA
     Indication: PARKINSON^S DISEASE
     Dosage: AM = 3.5 ML; CD= 1.9 ML/H DURING 16 HRS; ED= 1 ML
     Route: 050
     Dates: start: 20100322, end: 20100325
  4. DUODOPA [Suspect]
     Active Substance: CARBIDOPA\LEVODOPA
     Dosage: AM= 3ML; CD= 2.8 ML/H DURING 16 HRS; ND= 2.6 ML/H DURING 8 HRS; ED= 1.6 ML
     Route: 050
     Dates: start: 20101001, end: 20161114
  5. DUODOPA [Suspect]
     Active Substance: CARBIDOPA\LEVODOPA
     Dosage: DOSES CONTINUOUSLY MONITORED AND ADAPTED
     Route: 050
     Dates: start: 20100325, end: 20101001
  6. PROLOPA [Concomitant]
     Active Substance: BENSERAZIDE\LEVODOPA
     Indication: PRODUCT USED FOR UNKNOWN INDICATION
     Dosage: FORM STRENGTH: 200MG/50MG??UNIT DOSE = 1/4 TABLET

REACTIONS (2)
  - Device dislocation [Recovered/Resolved]
  - Stoma site pain [Unknown]
